FAERS Safety Report 7376775-9 (Version None)
Quarter: 2011Q1

REPORT INFORMATION
  Report Type: 
  Country: None (occurrence: None)
  Receive Date: 20110325
  Receipt Date: 20110321
  Transmission Date: 20110831
  Serious: Yes (Hospitalization)
  Sender: FDA-Public Use
  Company Number: GB-ASTRAZENECA-2011SE12170

PATIENT
  Age: 68 Year
  Sex: Male
  Weight: 79 kg

DRUGS (9)
  1. AMLODIPINE [Concomitant]
  2. LEVOTHYROXINE SODIUM [Concomitant]
  3. ASPIRIN [Concomitant]
  4. IRBESARTAN [Concomitant]
  5. SIMVASTATIN [Concomitant]
  6. QUININE SULFATE [Suspect]
     Indication: MUSCLE SPASMS
     Route: 048
     Dates: start: 20110106, end: 20110217
  7. OMEPRAZOLE [Suspect]
     Indication: PROPHYLAXIS
     Route: 048
     Dates: start: 20110207, end: 20110217
  8. BROMOCRIPTINE MESYLATE [Concomitant]
  9. NAPROXEN SODIUM [Suspect]
     Route: 048
     Dates: start: 20110207, end: 20110217

REACTIONS (1)
  - STEVENS-JOHNSON SYNDROME [None]
